FAERS Safety Report 7008914-3 (Version None)
Quarter: 2010Q3

REPORT INFORMATION
  Report Type: 
  Country: None (occurrence: None)
  Receive Date: 20100420
  Receipt Date: 20100316
  Transmission Date: 20110219
  Serious: No
  Sender: FDA-Public Use
  Company Number: LMI-2010-00179

PATIENT
  Age: 29 Year
  Sex: Female
  Weight: 74.8435 kg

DRUGS (2)
  1. ABLAVAR [Suspect]
     Indication: ARTERIOGRAM CAROTID
     Dosage: (10 ML),INTRAVENOUS BOLUS
     Route: 042
     Dates: start: 20100309, end: 20100309
  2. ABLAVAR [Suspect]
     Indication: VERTIGO
     Dosage: (10 ML),INTRAVENOUS BOLUS
     Route: 042
     Dates: start: 20100309, end: 20100309

REACTIONS (2)
  - NAUSEA [None]
  - THROAT TIGHTNESS [None]
